FAERS Safety Report 6020679-0 (Version None)
Quarter: 2008Q4

REPORT INFORMATION
  Report Type: 
  Country: None (occurrence: None)
  Receive Date: 20081223
  Receipt Date: 20081223
  Transmission Date: 20090506
  Serious: Yes (Other)
  Sender: FDA-Public Use
  Company Number: None

PATIENT
  Age: 70 Year
  Sex: Female
  Weight: 85.2762 kg

DRUGS (2)
  1. GAMUNEX [Suspect]
     Indication: HYPOGAMMAGLOBULINAEMIA
     Dosage: 40 GRAMS Q MONTH IV DRIP
     Route: 041
     Dates: start: 20081218, end: 20081218
  2. VASOTEC [Concomitant]

REACTIONS (5)
  - BLOOD PRESSURE INCREASED [None]
  - INFUSION RELATED REACTION [None]
  - MUSCULOSKELETAL CHEST PAIN [None]
  - PRURITUS [None]
  - URTICARIA [None]
